FAERS Safety Report 25385650 (Version 1)
Quarter: 2025Q2

REPORT INFORMATION
  Report Type: Spontaneous
  Country: DE (occurrence: DE)
  Receive Date: 20250602
  Receipt Date: 20250602
  Transmission Date: 20250716
  Serious: Yes (Hospitalization, Other)
  Sender: AMNEAL
  Company Number: DE-AMNEAL PHARMACEUTICALS-2025-AMRX-02060

PATIENT
  Age: 46 Year
  Sex: Male

DRUGS (1)
  1. AMPHETAMINE SULFATE [Suspect]
     Active Substance: AMPHETAMINE SULFATE
     Indication: Product used for unknown indication
     Route: 065

REACTIONS (3)
  - Intracranial aneurysm [Unknown]
  - Cerebrovascular accident [Unknown]
  - Drug abuse [Unknown]
